FAERS Safety Report 9848917 (Version 3)
Quarter: 2014Q2

REPORT INFORMATION
  Report Type: Spontaneous
  Country: US (occurrence: US)
  Receive Date: 20140128
  Receipt Date: 20140415
  Transmission Date: 20141212
  Serious: Yes (Disabling, Other)
  Sender: FDA-Public Use
  Company Number: US-PFIZER INC-2013067143

PATIENT
  Age: 61 Year
  Sex: Female

DRUGS (7)
  1. NEURONTIN [Suspect]
     Dosage: 600 MG, 1X/DAY
     Route: 048
  2. NEURONTIN [Suspect]
     Dosage: UNK
     Route: 048
  3. DILANTIN [Suspect]
     Indication: CONVULSION
     Dosage: 100 MG, 1X/DAY
     Route: 048
  4. DILANTIN [Suspect]
     Dosage: 400 MG, 2X/DAY
     Route: 048
     Dates: start: 1992
  5. CELEBREX [Suspect]
     Indication: ARTHRITIS
     Dosage: 200 MG, 1X/DAY WITH FOOD, AS NEEDED
     Route: 048
  6. CELEBREX [Suspect]
     Indication: ARTHRALGIA
     Dosage: 200 MG, 1X/DAY
     Route: 048
  7. CELEBREX [Suspect]
     Indication: PAIN

REACTIONS (2)
  - Spinal fracture [Unknown]
  - Road traffic accident [Unknown]
